FAERS Safety Report 7640757-X (Version None)
Quarter: 2011Q3

REPORT INFORMATION
  Report Type: 
  Country: None (occurrence: None)
  Receive Date: 20110722
  Receipt Date: 20110712
  Transmission Date: 20111222
  Serious: Yes (Hospitalization)
  Sender: FDA-Public Use
  Company Number: 1000022229

PATIENT
  Age: 78 Year
  Sex: Male
  Weight: 55 kg

DRUGS (2)
  1. REMINYL (GALANTAMINE) (CAPSULES)(GALANTAMINE) [Concomitant]
  2. MEMANTINE HYDROCHLORIDE [Suspect]
     Indication: DEMENTIA ALZHEIMER'S TYPE
     Dosage: (20 MG), ORAL
     Route: 048
     Dates: start: 20010817

REACTIONS (3)
  - PANCREATITIS [None]
  - WEIGHT DECREASED [None]
  - DIABETES MELLITUS [None]
